FAERS Safety Report 24150668 (Version 1)
Quarter: 2024Q3

REPORT INFORMATION
  Report Type: Spontaneous
  Country: US (occurrence: None)
  Receive Date: 20240728
  Receipt Date: 20240728
  Transmission Date: 20241017
  Serious: No
  Sender: Public
  Company Number: None

PATIENT
  Age: 54 Year
  Sex: Female
  Weight: 71.67 kg

DRUGS (19)
  1. LEFLUNOMIDE [Suspect]
     Active Substance: LEFLUNOMIDE
     Indication: Rheumatoid arthritis
     Dosage: 1 TABLET ONCE A DAY TAKEN BY MOUTH?
     Route: 048
     Dates: start: 20240328, end: 20240406
  2. INSULIN (NOVALOG) [Concomitant]
  3. SULFASALAZINE [Concomitant]
     Active Substance: SULFASALAZINE
  4. BUPROPION [Concomitant]
     Active Substance: BUPROPION
  5. DESVENLAFAXINE [Concomitant]
     Active Substance: DESVENLAFAXINE
  6. LISINOPRIL [Concomitant]
  7. CONCRETA [Concomitant]
  8. LEVOTHYROXINE [Concomitant]
     Active Substance: LEVOTHYROXINE\LEVOTHYROXINE SODIUM
  9. LIOTHYRONINE [Concomitant]
     Active Substance: LIOTHYRONINE
  10. ESTRADIOL [Concomitant]
     Active Substance: ESTRADIOL
  11. PROGESTEROPNE [Concomitant]
  12. UNSPECIFIED INGREDIENT [Concomitant]
     Active Substance: UNSPECIFIED INGREDIENT
  13. INSULIN PUMP [Concomitant]
  14. NAC [Concomitant]
  15. GIGESTIVE ENZYMES [Concomitant]
  16. PROBIOTICS NOS [Concomitant]
     Active Substance: PROBIOTICS NOS
  17. IBUPROFEN [Concomitant]
     Active Substance: IBUPROFEN
  18. ACETAMINOPHEN [Concomitant]
     Active Substance: ACETAMINOPHEN
  19. ANTISTIMINES [Concomitant]

REACTIONS (3)
  - Pruritus [None]
  - Urticaria [None]
  - Drug hypersensitivity [None]

NARRATIVE: CASE EVENT DATE: 20240328
